FAERS Safety Report 5848702-4 (Version None)
Quarter: 2008Q3

REPORT INFORMATION
  Report Type: 
  Country: None (occurrence: None)
  Receive Date: 20080814
  Receipt Date: 20080801
  Transmission Date: 20090109
  Serious: Yes (Hospitalization)
  Sender: FDA-Public Use
  Company Number: 237314J08USA

PATIENT
  Age: 45 Year
  Sex: Female
  Weight: 112.0385 kg

DRUGS (2)
  1. REBIF [Suspect]
     Indication: MULTIPLE SCLEROSIS
     Dosage: 8.8 MCG, 3 IN 1, SUBCUTANEOUS
     Route: 058
     Dates: start: 20080714, end: 20080727
  2. NEXIUM [Concomitant]

REACTIONS (4)
  - CONDITION AGGRAVATED [None]
  - IMPAIRED GASTRIC EMPTYING [None]
  - MULTIPLE SCLEROSIS [None]
  - VOMITING [None]
